FAERS Safety Report 15089742 (Version 1)
Quarter: 2018Q2

REPORT INFORMATION
  Report Type: Spontaneous
  Country: IT (occurrence: IT)
  Receive Date: 20180629
  Receipt Date: 20180629
  Transmission Date: 20180711
  Serious: Yes (Other)
  Sender: FDA-Public Use
  Company Number: IT-ASTRAZENECA-2018SE82137

PATIENT
  Age: 61 Year
  Sex: Male

DRUGS (2)
  1. NEXIUM [Suspect]
     Active Substance: ESOMEPRAZOLE MAGNESIUM
     Indication: PRODUCT USED FOR UNKNOWN INDICATION
     Route: 048
     Dates: start: 20170401, end: 20170428
  2. CARDICOR [Concomitant]
     Active Substance: BISOPROLOL
     Dosage: 1.0DF UNKNOWN
     Route: 048

REACTIONS (4)
  - Jaundice cholestatic [Recovering/Resolving]
  - Chromaturia [Recovering/Resolving]
  - Hepatitis cholestatic [Recovering/Resolving]
  - Fatigue [Recovering/Resolving]

NARRATIVE: CASE EVENT DATE: 20170428
